FAERS Safety Report 7399631-9 (Version None)
Quarter: 2011Q2

REPORT INFORMATION
  Report Type: 
  Country: None (occurrence: None)
  Receive Date: 20110407
  Receipt Date: 20110330
  Transmission Date: 20111010
  Serious: Yes (Life-Threatening)
  Sender: FDA-Public Use
  Company Number: ID-SANOFI-AVENTIS-2011SA015192

PATIENT
  Age: 68 Year
  Sex: Female
  Weight: 47 kg

DRUGS (16)
  1. PALONOSETRON HYDROCHLORIDE [Concomitant]
     Indication: PROPHYLAXIS
     Route: 042
     Dates: start: 20110226, end: 20110226
  2. LOPERAMIDE [Concomitant]
     Route: 048
     Dates: start: 20110307, end: 20110309
  3. TAXOTERE [Suspect]
     Route: 042
     Dates: start: 20110226, end: 20110226
  4. CARBOPLATIN [Suspect]
     Indication: BREAST CANCER
     Route: 042
     Dates: start: 20101204, end: 20101204
  5. CARBOPLATIN [Suspect]
     Route: 042
     Dates: start: 20110108, end: 20110108
  6. CARBOPLATIN [Suspect]
     Route: 042
     Dates: start: 20110226, end: 20110226
  7. PEGFILGRASTIM [Concomitant]
     Indication: PROPHYLAXIS
     Route: 058
     Dates: start: 20110226, end: 20110226
  8. ONDANSETRON [Concomitant]
     Route: 048
     Dates: start: 20110307, end: 20110309
  9. TAXOTERE [Suspect]
     Indication: BREAST CANCER
     Route: 042
     Dates: start: 20101023, end: 20101023
  10. TAXOTERE [Suspect]
     Route: 042
     Dates: start: 20101113, end: 20101113
  11. TAXOTERE [Suspect]
     Route: 042
     Dates: start: 20110108, end: 20110108
  12. RANITIDINE HYDROCHLORIDE [Concomitant]
     Indication: PROPHYLAXIS
     Route: 042
     Dates: start: 20110226, end: 20110226
  13. RANITIDINE [Concomitant]
     Route: 048
     Dates: start: 20110307, end: 20110309
  14. TAXOTERE [Suspect]
     Route: 042
     Dates: start: 20101204, end: 20101204
  15. DEXAMETHASONE [Concomitant]
     Indication: PREMEDICATION
     Route: 042
     Dates: start: 20110226, end: 20110226
  16. CAPTOPRIL [Concomitant]
     Indication: HYPERTENSION

REACTIONS (1)
  - HYPOKALAEMIA [None]
